FAERS Safety Report 23004655 (Version 2)
Quarter: 2023Q4

REPORT INFORMATION
  Report Type: Spontaneous
  Country: CZ (occurrence: CZ)
  Receive Date: 20230928
  Receipt Date: 20231227
  Transmission Date: 20240110
  Serious: Yes (Hospitalization, Other)
  Sender: FDA-Public Use
  Company Number: CZ-BRISTOL-MYERS SQUIBB COMPANY-2023-135187

PATIENT
  Age: 66 Year
  Weight: 110 kg

DRUGS (3)
  1. OPDIVO [Suspect]
     Active Substance: NIVOLUMAB
     Indication: Malignant melanoma
     Dates: start: 2023
  2. OPDIVO [Suspect]
     Active Substance: NIVOLUMAB
  3. YERVOY [Suspect]
     Active Substance: IPILIMUMAB
     Indication: Malignant melanoma
     Dates: start: 2023

REACTIONS (6)
  - Renal failure [Unknown]
  - Hypotension [Unknown]
  - Pneumonitis [Unknown]
  - Coagulopathy [Unknown]
  - Dehydration [Unknown]
  - Blood lactate dehydrogenase abnormal [Unknown]
